FAERS Safety Report 11193605 (Version 3)
Quarter: 2015Q3

REPORT INFORMATION
  Report Type: Spontaneous
  Country: US (occurrence: US)
  Receive Date: 20150616
  Receipt Date: 20150729
  Transmission Date: 20151125
  Serious: No
  Sender: FDA-Public Use
  Company Number: US-B.I. PHARMACEUTICALS,INC./RIDGEFIELD-2015-BI-30227BP

PATIENT
  Age: 70 Year
  Sex: Male
  Weight: 92.99 kg

DRUGS (1)
  1. PRADAXA [Suspect]
     Active Substance: DABIGATRAN ETEXILATE MESYLATE
     Indication: ATRIAL FIBRILLATION
     Dosage: 300 MG
     Route: 048
     Dates: start: 201306

REACTIONS (5)
  - Anxiety [Not Recovered/Not Resolved]
  - Contusion [Not Recovered/Not Resolved]
  - Contusion [Not Recovered/Not Resolved]
  - Product quality issue [Unknown]
  - Limb injury [Not Recovered/Not Resolved]

NARRATIVE: CASE EVENT DATE: 201506
